FAERS Safety Report 17166851 (Version 1)
Quarter: 2019Q4

REPORT INFORMATION
  Report Type: Report from Study
  Country: FR (occurrence: FR)
  Receive Date: 20191217
  Receipt Date: 20191217
  Transmission Date: 20200122
  Serious: Yes (Death, Life-Threatening)
  Sender: FDA-Public Use
  Company Number: NVSC2019FR069267

PATIENT
  Age: 18 Year
  Sex: Male
  Weight: 99 kg

DRUGS (20)
  1. CYCLOPHOSPHAMIDE. [Concomitant]
     Active Substance: CYCLOPHOSPHAMIDE
     Indication: CHEMOTHERAPY
     Route: 065
  2. PREDNISONE. [Concomitant]
     Active Substance: PREDNISONE
     Indication: CHEMOTHERAPY
     Dosage: 5 MG,SYRINGE, 1ML
     Route: 037
     Dates: start: 20191120
  3. VP-16 [Concomitant]
     Active Substance: ETOPOSIDE
     Indication: CHEMOTHERAPY
     Route: 065
  4. PAROXETIN [Concomitant]
     Active Substance: PAROXETINE HYDROCHLORIDE
     Indication: ANXIETY
     Route: 065
  5. L-ASPARAGINASE [Concomitant]
     Active Substance: ASPARAGINASE
     Indication: CHEMOTHERAPY
     Route: 065
  6. METHOTREXATE. [Concomitant]
     Active Substance: METHOTREXATE
     Dosage: 2100 UNK 24 HOURS
     Route: 042
     Dates: start: 20191113
  7. DAUNORUBICIN [Concomitant]
     Active Substance: DAUNORUBICIN
     Indication: CHEMOTHERAPY
     Route: 065
  8. NILOTINIB [Suspect]
     Active Substance: NILOTINIB
     Dosage: 400 UNK
     Route: 048
     Dates: start: 20191113
  9. METHOTREXATE. [Concomitant]
     Active Substance: METHOTREXATE
     Indication: CHEMOTHERAPY
     Dosage: 100 MG
     Route: 042
     Dates: start: 20191113, end: 20191114
  10. VINCRISTINE [Concomitant]
     Active Substance: VINCRISTINE
     Indication: CHEMOTHERAPY
     Route: 065
  11. G-CSF [Concomitant]
     Active Substance: GRANULOCYTE COLONY-STIMULATING FACTOR NOS
     Indication: CHEMOTHERAPY
     Route: 065
  12. IMATINIB. [Concomitant]
     Active Substance: IMATINIB MESYLATE
     Indication: CHEMOTHERAPY
     Route: 065
  13. ARACYTINE [Concomitant]
     Active Substance: CYTARABINE
     Indication: CHEMOTHERAPY
     Dosage: UNK
     Route: 042
     Dates: start: 20191113, end: 20191116
  14. DEXAMETHASONE. [Concomitant]
     Active Substance: DEXAMETHASONE
     Indication: CHEMOTHERAPY
     Route: 065
  15. DIPROSONE [Concomitant]
     Active Substance: BETAMETHASONE DIPROPIONATE
     Indication: RASH
     Route: 065
  16. NILOTINIB [Suspect]
     Active Substance: NILOTINIB
     Indication: ACUTE LYMPHOCYTIC LEUKAEMIA
     Dosage: 800 MG
     Route: 048
     Dates: start: 20191015
  17. CYTARABINE. [Concomitant]
     Active Substance: CYTARABINE
     Indication: CHEMOTHERAPY
     Dosage: 40 MG SYRINGE, 2ML
     Route: 037
     Dates: start: 20191120
  18. METHOTREXATE. [Concomitant]
     Active Substance: METHOTREXATE
     Dosage: 15 UNKSYRINGE, 1ML
     Route: 037
     Dates: start: 20191120
  19. 6-MERCAPTOPURINE MONOHYDRATE [Concomitant]
     Active Substance: MERCAPTOPURINE
     Indication: CHEMOTHERAPY
     Dosage: UNK
     Route: 065
  20. IDARUBICIN [Concomitant]
     Active Substance: IDARUBICIN
     Indication: CHEMOTHERAPY
     Route: 065

REACTIONS (4)
  - Respiratory distress [Fatal]
  - Lung disorder [Fatal]
  - Aplasia [Fatal]
  - Cardiac arrest [Fatal]

NARRATIVE: CASE EVENT DATE: 20191201
